FAERS Safety Report 24084646 (Version 1)
Quarter: 2024Q3

REPORT INFORMATION
  Report Type: Spontaneous
  Country: CA (occurrence: CA)
  Receive Date: 20240712
  Receipt Date: 20240712
  Transmission Date: 20241016
  Serious: Yes (Life-Threatening, Hospitalization, Other)
  Sender: PFIZER
  Company Number: CA-PFIZER INC-202400211236

PATIENT
  Age: 10 Year
  Sex: Female

DRUGS (19)
  1. SIROLIMUS [Suspect]
     Active Substance: SIROLIMUS
     Indication: Lymphangioma
     Dosage: 1.6 MG/M2, 2X/DAY
     Route: 048
  2. SIROLIMUS [Suspect]
     Active Substance: SIROLIMUS
     Dosage: 0.8 MG/M2, 2X/DAY
     Route: 048
  3. SIROLIMUS [Suspect]
     Active Substance: SIROLIMUS
     Dosage: 1.5 MG/M2, 2X/DAY
     Route: 048
  4. SIROLIMUS [Suspect]
     Active Substance: SIROLIMUS
     Dosage: 2 MG/M2, 2X/DAY
     Route: 048
  5. SIROLIMUS [Suspect]
     Active Substance: SIROLIMUS
     Dosage: HALVED
     Route: 048
  6. VINCRISTINE [Concomitant]
     Active Substance: VINCRISTINE
     Indication: Lymphangioma
     Dosage: 0.05 MG/KG, WEEKLY
     Route: 042
  7. VINCRISTINE [Concomitant]
     Active Substance: VINCRISTINE
     Dosage: 0.05 MG/KG, (THEN EVERY 2 OR 3 WEEKS FOR 1 MORE YEAR)
     Route: 042
  8. PREDNISONE [Concomitant]
     Active Substance: PREDNISONE
     Dosage: 1 MG/KG, DAILY
  9. PROPRANOLOL [Concomitant]
     Active Substance: PROPRANOLOL HYDROCHLORIDE
     Dosage: 1 MG/KG, DAILY
     Route: 048
  10. DOXYCYCLINE [Concomitant]
     Active Substance: DOXYCYCLINE\DOXYCYCLINE HYCLATE
     Dosage: ONE SESSION
  11. DOXYCYCLINE [Concomitant]
     Active Substance: DOXYCYCLINE\DOXYCYCLINE HYCLATE
     Dosage: 10 SESSIONS
  12. BLEOMYCIN [Concomitant]
     Active Substance: BLEOMYCIN SULFATE
     Indication: Lymphangioma
     Dosage: 10 SESSIONS, (CUMULATIVE DOSES OF BLEOMYCIN: 80.5 MG/M2)
  13. LIPIODOL [Concomitant]
     Active Substance: ETHIODIZED OIL
     Indication: Sclerotherapy
     Dosage: FOAM/MIXTURE OF 2 CM3, TWO SESSIONS
  14. SOTRADECOL [Concomitant]
     Active Substance: SODIUM TETRADECYL SULFATE
     Indication: Sclerotherapy
     Dosage: TWO SESSIONS, FOAM/MIXTURE OF 5 CM 3
  15. ALCOHOL [Concomitant]
     Active Substance: ALCOHOL
     Dosage: UNK, ONE
  16. TRAMETINIB [Concomitant]
     Active Substance: TRAMETINIB
     Indication: Lymphangioma
     Dosage: 0.025 MG/KG, DAILY
     Route: 048
  17. TRAMETINIB [Concomitant]
     Active Substance: TRAMETINIB
     Dosage: 0.012 MG/KG, DAILY
     Route: 048
  18. INTERFERON [Concomitant]
     Active Substance: INTERFERON
     Indication: Lymphangioma
     Dosage: UNK
     Route: 042
  19. OCTREOTIDE [Concomitant]
     Active Substance: OCTREOTIDE\OCTREOTIDE ACETATE
     Indication: Lymphangioma
     Dosage: THREE INJECTIONS

REACTIONS (6)
  - Glomerulosclerosis [Recovering/Resolving]
  - Nephropathy toxic [Recovering/Resolving]
  - Renal disorder [Recovering/Resolving]
  - Proteinuria [Recovering/Resolving]
  - Hypertension [Recovering/Resolving]
  - Renal disorder [Recovering/Resolving]
